FAERS Safety Report 20068774 (Version 5)
Quarter: 2023Q1

REPORT INFORMATION
  Report Type: Spontaneous
  Country: CA (occurrence: CA)
  Receive Date: 20211115
  Receipt Date: 20230227
  Transmission Date: 20230418
  Serious: Yes (Other)
  Sender: FDA-Public Use
  Company Number: CA-PFIZER INC-202101483180

PATIENT
  Age: 47 Year
  Sex: Female

DRUGS (8)
  1. RUXIENCE [Suspect]
     Active Substance: RITUXIMAB-PVVR
     Indication: Rheumatoid arthritis
     Dosage: 1000 MG, DAY 1 AND 15
     Route: 042
     Dates: start: 20210424, end: 20210508
  2. RUXIENCE [Suspect]
     Active Substance: RITUXIMAB-PVVR
     Dosage: 1000 MG X 1DOSE
     Route: 042
     Dates: start: 20211124, end: 20211124
  3. IBUPROFEN [Concomitant]
     Active Substance: IBUPROFEN
     Indication: Migraine
     Dosage: 1 DF, DOSAGE INFO IS NOT AVAILABLE
  4. HYDROXYCHLOROQUINE [Concomitant]
     Active Substance: HYDROXYCHLOROQUINE
     Indication: Rheumatoid arthritis
     Dosage: 1 DF, DAILY, 100 MG AND 200 MG DAILY ALTERNATING
  5. LEVOTHYROXINE [Concomitant]
     Active Substance: LEVOTHYROXINE
     Indication: Hypothyroidism
     Dosage: 0.312 MG, DAILY
     Route: 048
  6. TYLENOL [Concomitant]
     Active Substance: ACETAMINOPHEN
     Indication: Migraine
     Dosage: 1 DF, DOSAGE INFO NOT PROVIDED
  7. VIMOVO [Concomitant]
     Active Substance: ESOMEPRAZOLE MAGNESIUM\NAPROXEN
     Dosage: 1 DF, AS NEEDED
  8. ZOLOFT [Concomitant]
     Active Substance: SERTRALINE HYDROCHLORIDE
     Dosage: 100 MG, DAILY

REACTIONS (20)
  - Neck pain [Unknown]
  - Headache [Unknown]
  - Tendonitis [Unknown]
  - Arthralgia [Unknown]
  - Pain in extremity [Unknown]
  - Paraesthesia [Unknown]
  - Musculoskeletal stiffness [Unknown]
  - Migraine [Unknown]
  - Photosensitivity reaction [Unknown]
  - Nausea [Unknown]
  - Vomiting [Unknown]
  - Migraine with aura [Unknown]
  - Visual impairment [Unknown]
  - Thyroid mass [Unknown]
  - Dry eye [Unknown]
  - Dry mouth [Unknown]
  - Off label use [Unknown]
  - Off label use [Unknown]
  - Illness [Unknown]
  - Nasopharyngitis [Unknown]

NARRATIVE: CASE EVENT DATE: 20210101
